FAERS Safety Report 7601361-2 (Version None)
Quarter: 2011Q3

REPORT INFORMATION
  Report Type: 
  Country: None (occurrence: None)
  Receive Date: 20110711
  Receipt Date: 20110630
  Transmission Date: 20111222
  Serious: Yes (Hospitalization, Other)
  Sender: FDA-Public Use
  Company Number: US-ASTRAZENECA-2011SE39562

PATIENT
  Sex: Female

DRUGS (11)
  1. STOOL SOFTENERS [Concomitant]
  2. VITAMIN B-12 [Concomitant]
  3. FERROUS SULFATE TAB [Concomitant]
  4. MULTI-VITAMINS [Concomitant]
  5. ASPIRIN [Concomitant]
  6. MEGA RED [Concomitant]
  7. CRESTOR [Suspect]
     Route: 048
  8. ALLOPURINOL [Concomitant]
     Indication: NEPHROLITHIASIS
  9. CITRUCEL [Concomitant]
  10. FIBRE TABLETS [Concomitant]
  11. GARLIC [Concomitant]

REACTIONS (12)
  - PRURITUS [None]
  - DIARRHOEA [None]
  - HYPERTENSION [None]
  - NASOPHARYNGITIS [None]
  - BLOOD TRIGLYCERIDES INCREASED [None]
  - DEPRESSION [None]
  - HYPERCHLORHYDRIA [None]
  - HYPERSENSITIVITY [None]
  - RHINORRHOEA [None]
  - HYSTERECTOMY [None]
  - HEADACHE [None]
  - PAIN [None]
